FAERS Safety Report 18546033 (Version 2)
Quarter: 2021Q1

REPORT INFORMATION
  Report Type: Spontaneous
  Country: US (occurrence: US)
  Receive Date: 20201125
  Receipt Date: 20210131
  Transmission Date: 20210419
  Serious: Yes (Hospitalization, Disabling, Other)
  Sender: FDA-Public Use
  Company Number: US-PURDUE-USA-2020-0159402

PATIENT
  Sex: Male

DRUGS (9)
  1. OXYCONTIN [Suspect]
     Active Substance: OXYCODONE HYDROCHLORIDE
     Indication: PAIN
     Dosage: 20MG 3X DAILY
     Route: 048
     Dates: start: 1999
  2. OXYCONTIN [Suspect]
     Active Substance: OXYCODONE HYDROCHLORIDE
     Dosage: 10 MG, 6 TIMES A DAY
     Route: 048
     Dates: start: 2000
  3. SUBOXONE [Suspect]
     Active Substance: BUPRENORPHINE HYDROCHLORIDE\NALOXONE HYDROCHLORIDE
     Indication: PRODUCT USED FOR UNKNOWN INDICATION
     Dosage: UNK
     Route: 065
  4. MS CONTIN [Suspect]
     Active Substance: MORPHINE SULFATE
     Indication: PAIN
     Dosage: UNKNOWN
     Route: 048
  5. OXYCONTIN [Suspect]
     Active Substance: OXYCODONE HYDROCHLORIDE
     Dosage: 40MG 3X DAY
     Route: 048
     Dates: start: 2000
  6. OXYCONTIN [Suspect]
     Active Substance: OXYCODONE HYDROCHLORIDE
     Dosage: 80 MG 6 TIMES A DAY
     Route: 048
     Dates: start: 2000, end: 2015
  7. OXYCONTIN [Suspect]
     Active Substance: OXYCODONE HYDROCHLORIDE
     Dosage: 80MG 6X DAILY.
     Route: 048
     Dates: start: 2002
  8. OXYCODONE HCL TABLETS (RHODES 91?490) [Suspect]
     Active Substance: OXYCODONE HYDROCHLORIDE
     Indication: PAIN
     Dosage: UNK
     Route: 048
  9. OXYCONTIN [Suspect]
     Active Substance: OXYCODONE HYDROCHLORIDE
     Dosage: 60MG 4X DAILY
     Route: 048
     Dates: start: 2001

REACTIONS (25)
  - Confusional state [Unknown]
  - Gastrectomy [Unknown]
  - Mental impairment [Unknown]
  - Mental disorder [Unknown]
  - Somnolence [Unknown]
  - Dyspnoea [Unknown]
  - Amnesia [Unknown]
  - Blindness [Recovered/Resolved]
  - Suicidal ideation [Unknown]
  - Thinking abnormal [Unknown]
  - Drug dependence [Unknown]
  - Knee arthroplasty [Unknown]
  - Overdose [Unknown]
  - Head titubation [Unknown]
  - Muscular weakness [Unknown]
  - Withdrawal syndrome [Unknown]
  - Disturbance in attention [Unknown]
  - Fatigue [Unknown]
  - Abdominal discomfort [None]
  - Ulcer [Unknown]
  - Constipation [Unknown]
  - Dysarthria [Unknown]
  - Blood pressure increased [Unknown]
  - Mood altered [Unknown]
  - Insomnia [Unknown]

NARRATIVE: CASE EVENT DATE: 2001
